FAERS Safety Report 7761666-1 (Version None)
Quarter: 2011Q3

REPORT INFORMATION
  Report Type: 
  Country: None (occurrence: None)
  Receive Date: 20110920
  Receipt Date: 20110908
  Transmission Date: 20111222
  Serious: Yes (Hospitalization)
  Sender: FDA-Public Use
  Company Number: PHHY2011FR80210

PATIENT
  Sex: Female

DRUGS (10)
  1. TRAMADOL HCL [Suspect]
     Dosage: 100 MG, QD
     Route: 048
  2. NEORAL [Suspect]
     Indication: LIVER TRANSPLANT
     Dosage: UNK UKN, UNK
     Dates: start: 20110728, end: 20110803
  3. ORBENIN CAP [Suspect]
     Dosage: UNK UKN, UNK
  4. SOLU-MEDROL [Concomitant]
     Dosage: UNK UKN, UNK
  5. VALGANCICLOVIR [Suspect]
     Dosage: UNK UKN, UNK
     Route: 048
     Dates: start: 20110722, end: 20110724
  6. DIURETICS [Concomitant]
     Dosage: UNK UKN, UNK
  7. NEORAL [Suspect]
     Dosage: 200 MG, QD
     Dates: start: 20110809
  8. NEORAL [Suspect]
     Dosage: 400 MG, QD
     Dates: start: 20110820, end: 20110823
  9. FLUCONAZOLE [Suspect]
     Dosage: UNK UKN, UNK
     Dates: start: 20110722
  10. MYCOPHENOLATE MOFETIL (CELLCEPT) [Suspect]
     Dosage: 1500 MG, BID
     Route: 048
     Dates: start: 20110722

REACTIONS (8)
  - RENAL FAILURE ACUTE [None]
  - CEREBELLAR SYNDROME [None]
  - STATUS EPILEPTICUS [None]
  - NEUROTOXICITY [None]
  - AGITATION [None]
  - ENCEPHALOPATHY [None]
  - OPSOCLONUS MYOCLONUS [None]
  - EYE DISORDER [None]
